FAERS Safety Report 13658103 (Version 6)
Quarter: 2018Q2

REPORT INFORMATION
  Report Type: Report from Study
  Country: FR (occurrence: FR)
  Receive Date: 20170616
  Receipt Date: 20180529
  Transmission Date: 20180711
  Serious: Yes (Hospitalization)
  Sender: FDA-Public Use
  Company Number: FR-ROCHE-1950196

PATIENT
  Age: 56 Year
  Sex: Female

DRUGS (7)
  1. BLINDED OLAPARIB [Suspect]
     Active Substance: OLAPARIB
     Indication: MALIGNANT PERITONEAL NEOPLASM
     Dosage: DATE OF MOST RECENT DOSE PRIOR TO SAE ON 19/MAY/2017?TWICE DAILY FOR UP TO TWO YEARS OR UNTIL?OBJECT
     Route: 048
     Dates: start: 20170321, end: 20170519
  2. BEVACIZUMAB. [Suspect]
     Active Substance: BEVACIZUMAB
     Dosage: STANDARD DOSE: 15 MG/KG
     Route: 042
     Dates: start: 20170816
  3. XANAX [Concomitant]
     Active Substance: ALPRAZOLAM
     Route: 048
  4. BLINDED OLAPARIB [Suspect]
     Active Substance: OLAPARIB
     Dosage: RE-INTRODUCED
     Route: 048
     Dates: start: 20170622
  5. BEVACIZUMAB. [Suspect]
     Active Substance: BEVACIZUMAB
     Indication: MALIGNANT PERITONEAL NEOPLASM
     Dosage: DATE OF MOST RECENT DOSE PRIOR TO SAE ON 10/APR/2017?TEMPORARILY INTERRUPTED ON 04/MAY/2017?STANDARD
     Route: 042
     Dates: start: 20170321
  6. TRAMADOL. [Concomitant]
     Active Substance: TRAMADOL
     Route: 048
  7. SPASFON (FRANCE) [Concomitant]
     Active Substance: PHLOROGLUCINOL\1,3,5-TRIMETHOXYBENZENE
     Route: 048

REACTIONS (1)
  - Lymphocele [Not Recovered/Not Resolved]

NARRATIVE: CASE EVENT DATE: 20170519
